FAERS Safety Report 16840759 (Version 1)
Quarter: 2019Q3

REPORT INFORMATION
  Report Type: Spontaneous
  Country: CH (occurrence: CH)
  Receive Date: 20190923
  Receipt Date: 20190923
  Transmission Date: 20191005
  Serious: Yes (Hospitalization, Other)
  Sender: FDA-Public Use
  Company Number: CH-EPIC PHARMA LLC-2019EPC00265

PATIENT
  Age: 6 Week
  Sex: Male
  Weight: 4.8 kg

DRUGS (1)
  1. MORPHINE SULFATE. [Suspect]
     Active Substance: MORPHINE SULFATE
     Indication: PAIN
     Dosage: 5 MG/KG, ONCE
     Route: 048

REACTIONS (8)
  - Bradypnoea [Recovered/Resolved]
  - Tachypnoea [Recovered/Resolved]
  - Myoclonus [Recovered/Resolved]
  - Opisthotonus [Recovered/Resolved]
  - Overdose [Recovered/Resolved]
  - Somnolence [Recovered/Resolved]
  - Restlessness [Recovered/Resolved]
  - Product prescribing error [Recovered/Resolved]
